FAERS Safety Report 16150239 (Version 1)
Quarter: 2019Q2

REPORT INFORMATION
  Report Type: Spontaneous
  Country: US (occurrence: US)
  Receive Date: 20190403
  Receipt Date: 20190403
  Transmission Date: 20190711
  Serious: No
  Sender: FDA-Public Use
  Company Number: US-DRREDDYS-USA/USA/19/0109170

PATIENT
  Age: 56 Year
  Sex: Female
  Weight: 56.25 kg

DRUGS (2)
  1. PAXIL [Concomitant]
     Active Substance: PAROXETINE HYDROCHLORIDE
     Indication: PRODUCT USED FOR UNKNOWN INDICATION
     Route: 065
  2. HABITROL [Suspect]
     Active Substance: NICOTINE
     Indication: SMOKING CESSATION THERAPY
     Route: 062
     Dates: start: 20190325, end: 20190326

REACTIONS (3)
  - Application site erythema [Not Recovered/Not Resolved]
  - Application site rash [Unknown]
  - Application site swelling [Recovered/Resolved]

NARRATIVE: CASE EVENT DATE: 20190326
